FAERS Safety Report 16048006 (Version 2)
Quarter: 2020Q2

REPORT INFORMATION
  Report Type: Spontaneous
  Country: IN (occurrence: IN)
  Receive Date: 20190307
  Receipt Date: 20200407
  Transmission Date: 20200713
  Serious: Yes (Other)
  Sender: FDA-Public Use
  Company Number: IN-PFIZER INC-2019098906

PATIENT
  Age: 63 Year
  Sex: Female

DRUGS (2)
  1. PALBACE [Suspect]
     Active Substance: PALBOCICLIB
     Indication: BREAST CANCER METASTATIC
     Dosage: 125 MG, CYCLIC (ONCE DAILY FOR 21 DAYS ON AND 8 DAYS OFF FOR 6 MONTHS)
     Route: 048
     Dates: start: 20170914
  2. LETROZOLE. [Concomitant]
     Active Substance: LETROZOLE
     Dosage: 2.5 MG, 1X/DAY FOR 6 MONTHS
     Route: 048

REACTIONS (2)
  - Glomerular filtration rate decreased [Unknown]
  - Neoplasm progression [Recovering/Resolving]
